FAERS Safety Report 18731116 (Version 1)
Quarter: 2021Q1

REPORT INFORMATION
  Report Type: Spontaneous
  Country: US (occurrence: US)
  Receive Date: 20210112
  Receipt Date: 20210112
  Transmission Date: 20210419
  Serious: Yes (Death, Hospitalization, Other)
  Sender: FDA-Public Use
  Company Number: US-PFIZER INC-2021015881

PATIENT
  Age: 67 Year
  Sex: Female

DRUGS (4)
  1. HYDROXYZINE PAMOATE. [Suspect]
     Active Substance: HYDROXYZINE PAMOATE
     Dosage: UNK, INGESTION
     Route: 048
  2. TRAMADOL. [Suspect]
     Active Substance: TRAMADOL
     Dosage: UNK, INGESTION
     Route: 048
  3. GABAPENTIN. [Suspect]
     Active Substance: GABAPENTIN
     Dosage: UNK, INGESTION
     Route: 048
  4. BACLOFEN. [Suspect]
     Active Substance: BACLOFEN
     Dosage: UNK, INGESTION
     Route: 048

REACTIONS (1)
  - Completed suicide [Fatal]

NARRATIVE: CASE EVENT DATE: 2019
